FAERS Safety Report 5268612-3 (Version None)
Quarter: 2007Q1

REPORT INFORMATION
  Report Type: 
  Country: None (occurrence: None)
  Receive Date: 20070315
  Receipt Date: 20070315
  Transmission Date: 20070707
  Serious: Yes (Life-Threatening)
  Sender: FDA-Public Use
  Company Number: None

PATIENT
  Age: 21 Year
  Sex: Male
  Weight: 86.1834 kg

DRUGS (1)
  1. AMBIEN CR [Suspect]
     Indication: INSOMNIA
     Dosage: 1 PILL PER DAY AT NIGHT 1 PER NIGHT PO
     Route: 048
     Dates: start: 20061003, end: 20061119

REACTIONS (5)
  - ABNORMAL BEHAVIOUR [None]
  - ABNORMAL SLEEP-RELATED EVENT [None]
  - AMNESIA [None]
  - IMPAIRED DRIVING ABILITY [None]
  - ROAD TRAFFIC ACCIDENT [None]
